FAERS Safety Report 17601042 (Version 1)
Quarter: 2020Q1

REPORT INFORMATION
  Report Type: Spontaneous
  Country: FR (occurrence: FR)
  Receive Date: 20200331
  Receipt Date: 20200331
  Transmission Date: 20200409
  Serious: Yes (Other)
  Sender: FDA-Public Use
  Company Number: FR-SUN PHARMACEUTICAL INDUSTRIES LTD-2020RR-242209

PATIENT
  Age: 15 Year
  Sex: Female
  Weight: 46.5 kg

DRUGS (5)
  1. AERIUS [Concomitant]
     Indication: HYPERSENSITIVITY
     Dosage: AS NECESSARY
     Route: 048
     Dates: start: 20200204
  2. DOLIPRANE [Suspect]
     Active Substance: ACETAMINOPHEN
     Indication: PAIN
     Dosage: 750 MILLIGRAM, 1DOSE/6HOUR
     Route: 048
     Dates: start: 20200204
  3. ASPIRINE [Suspect]
     Active Substance: ASPIRIN
     Indication: DRESSLER^S SYNDROME
     Dosage: 3 GRAM, DAILY
     Route: 048
     Dates: start: 20200130
  4. COLCHICINE. [Suspect]
     Active Substance: COLCHICINE
     Indication: DRESSLER^S SYNDROME
     Dosage: 0.5 MILLIGRAM, DAILY
     Route: 048
     Dates: start: 20200204
  5. OMEPRAZOLE. [Suspect]
     Active Substance: OMEPRAZOLE
     Indication: PROPHYLAXIS AGAINST GASTROINTESTINAL ULCER
     Dosage: 40 MILLIGRAM, DAILY
     Route: 048
     Dates: start: 20200204

REACTIONS (1)
  - Hepatocellular injury [Not Recovered/Not Resolved]

NARRATIVE: CASE EVENT DATE: 20200226
